FAERS Safety Report 4407957-3 (Version None)
Quarter: 2004Q3

REPORT INFORMATION
  Report Type: 
  Country: None (occurrence: None)
  Receive Date: 20040716
  Receipt Date: 20040707
  Transmission Date: 20050211
  Serious: Yes (Other)
  Sender: FDA-Public Use
  Company Number: 2004222296FR

PATIENT
  Age: 36 Year
  Sex: Male

DRUGS (6)
  1. ZYVOXID (LINEZOLID) TABLET [Suspect]
     Indication: ANTIBACTERIAL PROPHYLAXIS
     Dosage: 2 DF, DAILY, ORAL
     Route: 048
     Dates: start: 20040528
  2. CLARITIN [Concomitant]
  3. CELEBREX [Concomitant]
  4. ATARAX [Concomitant]
  5. LEXOMIL [Concomitant]
  6. OMEPRAZOLE [Concomitant]

REACTIONS (1)
  - HEPATITIS [None]
